FAERS Safety Report 8831092 (Version 1)
Quarter: 2012Q4

REPORT INFORMATION
  Report Type: 
  Country: US (occurrence: US)
  Receive Date: 20121009
  Receipt Date: 20121009
  Transmission Date: 20130627
  Serious: No
  Sender: FDA-Public Use
  Company Number: US-PFIZER INC-2012247773

PATIENT
  Age: 74 Year
  Sex: Male
  Weight: 76.2 kg

DRUGS (6)
  1. SUTENT [Suspect]
     Indication: RENAL CANCER METASTATIC
     Dosage: 50 mg, 1x/day
     Route: 048
     Dates: start: 20120913, end: 20120916
  2. SUTENT [Suspect]
     Dosage: UNK
     Route: 048
     Dates: start: 20120923, end: 2012
  3. SUTENT [Suspect]
     Dosage: 50 mg, 1x/day
     Route: 048
     Dates: start: 20121003
  4. PRILOSEC [Concomitant]
     Dosage: 20 mg, 1x/day
  5. LEXAPRO [Concomitant]
     Dosage: 10 mg, 1x/day
  6. SENOKOT [Concomitant]
     Dosage: UNK

REACTIONS (2)
  - Stomatitis [Recovered/Resolved]
  - Oedema peripheral [Unknown]
